FAERS Safety Report 22821026 (Version 2)
Quarter: 2024Q3

REPORT INFORMATION
  Report Type: Spontaneous
  Country: US (occurrence: US)
  Receive Date: 20230814
  Receipt Date: 20240814
  Transmission Date: 20241017
  Serious: No
  Sender: AEGERION
  Company Number: US-AMRYT PHARMACEUTICALS DAC-AEGR006518

PATIENT
  Sex: Female
  Weight: 26.213 kg

DRUGS (3)
  1. JUXTAPID [Suspect]
     Active Substance: LOMITAPIDE MESYLATE
     Indication: Type IIa hyperlipidaemia
     Dosage: 10 MILLIGRAM, AT BEDTIME
     Route: 048
  2. EZETIMIBE [Concomitant]
     Active Substance: EZETIMIBE
     Indication: Product used for unknown indication
  3. ATORVASTATIN CALCIUM [Concomitant]
     Active Substance: ATORVASTATIN CALCIUM
     Indication: Product used for unknown indication

REACTIONS (4)
  - Apheresis [Unknown]
  - Blood cholesterol abnormal [Unknown]
  - Intentional product use issue [Unknown]
  - Off label use [Unknown]
